FAERS Safety Report 7093134-7 (Version None)
Quarter: 2010Q4

REPORT INFORMATION
  Report Type: 
  Country: None (occurrence: None)
  Receive Date: 20101110
  Receipt Date: 20090521
  Transmission Date: 20110411
  Serious: No
  Sender: FDA-Public Use
  Company Number: US-KINGPHARMUSA00001-K200900619

PATIENT
  Age: 50 Year
  Sex: Male
  Weight: 86.168 kg

DRUGS (6)
  1. FLECTOR [Suspect]
     Indication: ULNAR NERVE INJURY
     Dosage: 1/2 PATCH
     Route: 061
     Dates: start: 20090520, end: 20090520
  2. LISINOPRIL [Concomitant]
     Indication: HYPERTENSION
     Dosage: 10 MG, QD
     Route: 048
  3. HYDROCHLOROTHIAZIDE [Concomitant]
     Indication: HYPERTENSION
     Dosage: 125 MG, QD
     Route: 048
  4. KLONOPIN [Concomitant]
     Indication: INSOMNIA
     Dosage: 1 MG, QHS
     Route: 048
  5. COSAMIN DS [Concomitant]
     Dosage: 2 DF, BID
     Route: 048
  6. M.V.I. [Concomitant]
     Dosage: UNK
     Route: 048

REACTIONS (3)
  - HYPERHIDROSIS [None]
  - OEDEMA PERIPHERAL [None]
  - VASODILATATION [None]
